FAERS Safety Report 20135291 (Version 1)
Quarter: 2021Q4

REPORT INFORMATION
  Report Type: Spontaneous
  Country: US (occurrence: None)
  Receive Date: 20211130
  Receipt Date: 20211130
  Transmission Date: 20220303
  Serious: Yes (Disabling)
  Sender: FDA-Public Use
  Company Number: None

PATIENT
  Age: 68 Year
  Sex: Male
  Weight: 77.4 kg

DRUGS (1)
  1. EFFEXOR [Suspect]
     Active Substance: VENLAFAXINE HYDROCHLORIDE
     Indication: Depression
     Route: 048
     Dates: start: 19940829, end: 20211130

REACTIONS (4)
  - Dyskinesia [None]
  - Amnesia [None]
  - Pain in extremity [None]
  - Memory impairment [None]

NARRATIVE: CASE EVENT DATE: 20200301
